FAERS Safety Report 15169718 (Version 2)
Quarter: 2018Q3

REPORT INFORMATION
  Report Type: Report from Study
  Country: BR (occurrence: BR)
  Receive Date: 20180720
  Receipt Date: 20180726
  Transmission Date: 20181010
  Serious: Yes (Other)
  Sender: FDA-Public Use
  Company Number: BR-ROCHE-2079466

PATIENT
  Age: 77 Year
  Sex: Male
  Weight: 68.3 kg

DRUGS (1)
  1. ATEZOLIZUMAB. [Suspect]
     Active Substance: ATEZOLIZUMAB
     Indication: NON-SMALL CELL LUNG CANCER METASTATIC
     Route: 042
     Dates: start: 20171128

REACTIONS (6)
  - Oedema peripheral [Recovered/Resolved]
  - Disease progression [Unknown]
  - Pain in extremity [Recovering/Resolving]
  - Micturition urgency [Recovered/Resolved]
  - Musculoskeletal chest pain [Recovered/Resolved]
  - Drug ineffective [Unknown]

NARRATIVE: CASE EVENT DATE: 20180126
